FAERS Safety Report 8478383-5 (Version None)
Quarter: 2012Q2

REPORT INFORMATION
  Report Type: 
  Country: None (occurrence: None)
  Receive Date: 20120629
  Receipt Date: 20120620
  Transmission Date: 20120825
  Serious: Yes (Other)
  Sender: FDA-Public Use
  Company Number: US-ABBOTT-12P-163-0948458-00

PATIENT
  Sex: Female
  Weight: 70.37 kg

DRUGS (8)
  1. MEDICAL MARIJUANA [Concomitant]
     Indication: INSOMNIA
     Dosage: VAPORIZER- EVERY NIGHT
     Route: 055
  2. HYDROCHLOROTHIAZIDE [Concomitant]
     Indication: HYPERTENSION
  3. ASCORBIC ACID [Concomitant]
     Indication: VITAMIN SUPPLEMENTATION
  4. HUMIRA [Suspect]
     Indication: RHEUMATOID ARTHRITIS
     Dates: start: 20120101
  5. HYDROCODONE BITARTRATE [Concomitant]
     Indication: RHEUMATOID ARTHRITIS
  6. SULFASALAZINE [Concomitant]
     Indication: RHEUMATOID ARTHRITIS
  7. LISINOPRIL [Concomitant]
     Indication: HYPERTENSION
  8. CALCIUM [Concomitant]
     Indication: MINERAL SUPPLEMENTATION

REACTIONS (6)
  - COUGH [None]
  - FATIGUE [None]
  - LOCAL SWELLING [None]
  - THYROID CANCER [None]
  - METASTASES TO LYMPH NODES [None]
  - WHITE BLOOD CELL COUNT DECREASED [None]
